FAERS Safety Report 7047143-4 (Version None)
Quarter: 2010Q4

REPORT INFORMATION
  Report Type: 
  Country: None (occurrence: None)
  Receive Date: 20101007
  Receipt Date: 20100924
  Transmission Date: 20110411
  Serious: Yes (Hospitalization)
  Sender: FDA-Public Use
  Company Number: TCI2010A04065

PATIENT

DRUGS (3)
  1. ROZEREM [Suspect]
     Indication: INSOMNIA
     Dosage: 8 MG (8 MG, 1 IN 1 D) PER ORAL
     Route: 048
  2. SSRI [Suspect]
     Dosage: PER ORAL
     Route: 048
  3. ANTIPSYCHOTICS [Suspect]
     Dosage: PER ORAL
     Route: 048

REACTIONS (2)
  - ALTERED STATE OF CONSCIOUSNESS [None]
  - SOMNOLENCE [None]
